FAERS Safety Report 5395639-3 (Version None)
Quarter: 2007Q3

REPORT INFORMATION
  Report Type: 
  Country: None (occurrence: None)
  Receive Date: 20070720
  Receipt Date: 20070705
  Transmission Date: 20080115
  Serious: Yes (Hospitalization, Other)
  Sender: FDA-Public Use
  Company Number: 155768ISR

PATIENT
  Sex: Male

DRUGS (1)
  1. DOXAZOSIN MESYLATE [Suspect]
     Indication: BENIGN PROSTATIC HYPERPLASIA
     Dosage: 4 MG (2 MG, 2 IN 1 D), ORAL
     Route: 048

REACTIONS (4)
  - FLOPPY IRIS SYNDROME [None]
  - IRIDOCELE [None]
  - MIOSIS [None]
  - PROCEDURAL COMPLICATION [None]
